FAERS Safety Report 9282397 (Version 2)
Quarter: 2013Q2

REPORT INFORMATION
  Report Type: Spontaneous
  Country: US (occurrence: US)
  Receive Date: 20130510
  Receipt Date: 20130517
  Transmission Date: 20140414
  Serious: Yes (Hospitalization, Other)
  Sender: FDA-Public Use
  Company Number: US-BAYER-2013-057340

PATIENT
  Age: 25 Year
  Sex: Female
  Weight: 65.76 kg

DRUGS (10)
  1. YAZ [Suspect]
  2. GIANVI [Suspect]
  3. YASMIN [Suspect]
  4. FLUTICASONE [Concomitant]
     Dosage: 50 ?G, UNK
     Route: 045
     Dates: start: 20110403
  5. ROBAXIN [Concomitant]
  6. CALCIUM [Concomitant]
  7. VITAMIN D [Concomitant]
  8. FLONASE [Concomitant]
  9. MULTIVITAMIN [Concomitant]
  10. VICODIN [Concomitant]

REACTIONS (3)
  - Pulmonary embolism [Recovering/Resolving]
  - Pulmonary infarction [Recovering/Resolving]
  - Cholelithiasis [None]
